FAERS Safety Report 19649804 (Version 1)
Quarter: 2021Q3

REPORT INFORMATION
  Report Type: Spontaneous
  Country: US (occurrence: US)
  Receive Date: 20210802
  Receipt Date: 20210802
  Transmission Date: 20211014
  Serious: Yes (Other)
  Sender: FDA-Public Use
  Company Number: None

PATIENT
  Age: 22 Year

DRUGS (1)
  1. CASIRIVIMAB 600 MG/IMDEVIMAB 600 MG IN NSS 260 ML [Suspect]
     Active Substance: CASIRIVIMAB\IMDEVIMAB
     Indication: COVID-19
     Dates: start: 20210802, end: 20210802

REACTIONS (3)
  - Hypoaesthesia [None]
  - Infusion related reaction [None]
  - Syncope [None]

NARRATIVE: CASE EVENT DATE: 20210802
